FAERS Safety Report 21143952 (Version 1)
Quarter: 2022Q3

REPORT INFORMATION
  Report Type: Spontaneous
  Country: CA (occurrence: CA)
  Receive Date: 20220728
  Receipt Date: 20220728
  Transmission Date: 20221027
  Serious: Yes (Other)
  Sender: FDA-Public Use
  Company Number: None

PATIENT
  Age: 31 Year
  Sex: Male
  Weight: 54 kg

DRUGS (1)
  1. METHOTREXATE [Suspect]
     Active Substance: METHOTREXATE
     Indication: Product used for unknown indication
     Route: 058

REACTIONS (6)
  - Therapeutic product effect incomplete [Unknown]
  - Visual impairment [Unknown]
  - Intraocular pressure increased [Unknown]
  - Product use issue [Unknown]
  - Uveitis [Unknown]
  - Cystoid macular oedema [Unknown]
